FAERS Safety Report 7498460-5 (Version None)
Quarter: 2011Q2

REPORT INFORMATION
  Report Type: 
  Country: None (occurrence: None)
  Receive Date: 20110524
  Receipt Date: 20110511
  Transmission Date: 20111010
  Serious: Yes (Other)
  Sender: FDA-Public Use
  Company Number: US-BAYER-2011-040980

PATIENT
  Age: 55 Year
  Sex: Female

DRUGS (8)
  1. PLAVIX [Concomitant]
  2. LANTUS [Concomitant]
  3. FAMOTIDINE [Concomitant]
  4. AVELOX [Suspect]
     Indication: ANIMAL BITE
     Dosage: 400 MG, QD
     Route: 048
     Dates: start: 20100721
  5. FENOFIBRATE [Concomitant]
  6. METOPROLOL SUCCINATE [Concomitant]
  7. NOVOLOG [Concomitant]
  8. GEMFIBROZIL [Concomitant]

REACTIONS (4)
  - NEOPLASM [None]
  - NIGHTMARE [None]
  - ABDOMINAL PAIN [None]
  - TREMOR [None]
